FAERS Safety Report 4848183-3 (Version None)
Quarter: 2005Q4

REPORT INFORMATION
  Report Type: 
  Country: None (occurrence: None)
  Receive Date: 20051208
  Receipt Date: 20051202
  Transmission Date: 20060501
  Serious: Yes (Other)
  Sender: FDA-Public Use
  Company Number: US-BRISTOL-MYERS SQUIBB COMPANY-13202254

PATIENT
  Age: 62 Year
  Sex: Female
  Weight: 68 kg

DRUGS (9)
  1. COUMADIN [Suspect]
     Indication: THROMBOSIS PROPHYLAXIS
     Dosage: 7.5 TO 10 MG DAILY FOR YEARS
  2. ALTACE [Concomitant]
     Dates: start: 20040901
  3. ASPIRIN [Concomitant]
     Dosage: FOR YEARS
  4. CALCIUM GLUCONATE [Concomitant]
     Dosage: 600-1200 MG ONCE DAILY FOR YEARS
  5. DIAZEPAM [Concomitant]
     Indication: INSOMNIA
  6. LASIX [Concomitant]
  7. POTASSIUM [Concomitant]
  8. PREVACID [Concomitant]
  9. TOPROL-XL [Concomitant]

REACTIONS (3)
  - CONTUSION [None]
  - INTERNATIONAL NORMALISED RATIO FLUCTUATION [None]
  - VISUAL FIELD DEFECT [None]
